FAERS Safety Report 9761503 (Version 2)
Quarter: 2013Q4

REPORT INFORMATION
  Report Type: Spontaneous
  Country: US (occurrence: US)
  Receive Date: 20131216
  Receipt Date: 20131216
  Transmission Date: 20140711
  Serious: No
  Sender: FDA-Public Use
  Company Number: US-ABBVIE-12P-163-0967804-00

PATIENT
  Age: 49 Year
  Sex: Female
  Weight: 54.48 kg

DRUGS (4)
  1. PROMETRIUM [Suspect]
     Indication: HORMONE REPLACEMENT THERAPY
     Dosage: AT BEDTIME
  2. PROGESTERONE [Suspect]
     Indication: HORMONE REPLACEMENT THERAPY
     Dates: start: 201207
  3. PROGESTERONE [Suspect]
     Indication: HORMONE REPLACEMENT THERAPY
     Dosage: BY WATSON
     Dates: start: 20120726, end: 201208
  4. ESTROGEN GEL [Concomitant]
     Indication: HORMONE REPLACEMENT THERAPY

REACTIONS (4)
  - Hormone level abnormal [Unknown]
  - Insomnia [Unknown]
  - Headache [Unknown]
  - Hot flush [Unknown]
